FAERS Safety Report 15397251 (Version 1)
Quarter: 2018Q3

REPORT INFORMATION
  Report Type: Spontaneous
  Country: US (occurrence: US)
  Receive Date: 20180918
  Receipt Date: 20180918
  Transmission Date: 20181010
  Serious: Yes (Hospitalization)
  Sender: FDA-Public Use
  Company Number: US-TEVA-2018-US-954505

PATIENT
  Age: 69 Year
  Sex: Male

DRUGS (9)
  1. ASPIRIN. [Concomitant]
     Active Substance: ASPIRIN
     Dosage: HAD BEEN TAKING FOR MORE THAN 5 YEARS
     Route: 065
  2. ATORVASTATIN [Concomitant]
     Active Substance: ATORVASTATIN
     Dosage: HAD BEEN TAKING FOR MORE THAN 5 YEARS
     Route: 065
  3. ATENOLOL. [Concomitant]
     Active Substance: ATENOLOL
     Dosage: HAD BEEN TAKING FOR MORE THAN 5 YEARS
     Route: 065
  4. TAMSULOSIN [Concomitant]
     Active Substance: TAMSULOSIN
     Dosage: HAD BEEN TAKING FOR MORE THAN 5 YEARS
     Route: 065
  5. AMLODIPINE [Concomitant]
     Active Substance: AMLODIPINE BESYLATE
     Dosage: HAD BEEN TAKING FOR MORE THAN 5 YEARS
     Route: 065
  6. NITROFURANTOIN. [Suspect]
     Active Substance: NITROFURANTOIN
     Indication: URINARY TRACT INFECTION
     Route: 065
  7. DULOXETINE. [Concomitant]
     Active Substance: DULOXETINE
     Dosage: HAD BEEN TAKING FOR MORE THAN 5 YEARS
     Route: 065
  8. BUPROPION. [Concomitant]
     Active Substance: BUPROPION
     Dosage: HAD BEEN TAKING FOR MORE THAN 5 YEARS
     Route: 065
  9. FUROSEMIDE. [Concomitant]
     Active Substance: FUROSEMIDE
     Dosage: HAD BEEN TAKING FOR MORE THAN 5 YEARS
     Route: 065

REACTIONS (1)
  - Acute hepatic failure [Recovering/Resolving]
